FAERS Safety Report 16609086 (Version 2)
Quarter: 2019Q3

REPORT INFORMATION
  Report Type: Spontaneous
  Country: FR (occurrence: FR)
  Receive Date: 20190722
  Receipt Date: 20190903
  Transmission Date: 20191004
  Serious: Yes (Hospitalization, Other)
  Sender: FDA-Public Use
  Company Number: FR-SA-2019SA195222

PATIENT
  Age: 59 Year
  Sex: Female
  Weight: 66 kg

DRUGS (28)
  1. CORTANCYL [Suspect]
     Active Substance: PREDNISONE
     Indication: PROPHYLAXIS AGAINST TRANSPLANT REJECTION
     Dosage: 50 MG, QD
     Route: 048
     Dates: start: 20190527
  2. ALLOPURINOL. [Suspect]
     Active Substance: ALLOPURINOL
     Indication: HYPERURICAEMIA
     Dosage: 1 DF, QD
     Route: 048
     Dates: start: 201812, end: 20190526
  3. CORDARONE [Suspect]
     Active Substance: AMIODARONE HYDROCHLORIDE
     Indication: ATRIAL FIBRILLATION
     Dosage: 200 MG, QD
     Route: 048
     Dates: start: 2008, end: 20190526
  4. MYCOPHENOLATE MOFETIL. [Suspect]
     Active Substance: MYCOPHENOLATE MOFETIL
     Indication: PROPHYLAXIS AGAINST TRANSPLANT REJECTION
     Dosage: 3000 MG, QD
     Dates: start: 20190529, end: 20190608
  5. SILDENAFIL CITRATE. [Suspect]
     Active Substance: SILDENAFIL CITRATE
     Indication: PULMONARY ARTERIAL HYPERTENSION
     Dosage: 60 MG, QD
     Route: 048
     Dates: start: 20190527, end: 20190605
  6. NEORAL [Suspect]
     Active Substance: CYCLOSPORINE
     Indication: PROPHYLAXIS AGAINST TRANSPLANT REJECTION
     Dosage: 400 MG, QD
     Route: 048
     Dates: start: 20190529
  7. LOVENOX [Suspect]
     Active Substance: ENOXAPARIN SODIUM
     Indication: THROMBOSIS PROPHYLAXIS
     Dosage: 8000 IU, QD
     Route: 058
     Dates: start: 20190604, end: 20190614
  8. PROPOFOL. [Suspect]
     Active Substance: PROPOFOL
     Indication: SEDATION
     Dosage: 100 MG, QH
     Route: 042
     Dates: start: 20190527, end: 20190530
  9. PRAVASTATIN. [Suspect]
     Active Substance: PRAVASTATIN
     Indication: HYPERCHOLESTEROLAEMIA
     Dosage: 40 MG, QD
     Route: 048
     Dates: start: 20190527, end: 20190625
  10. EPINEPHRINE. [Suspect]
     Active Substance: EPINEPHRINE
     Indication: CIRCULATORY COLLAPSE
     Dosage: 0.5 UG/KG, QMN
     Route: 042
     Dates: start: 20190527, end: 20190528
  11. MYFORTIC [Suspect]
     Active Substance: MYCOPHENOLATE SODIUM
     Indication: PROPHYLAXIS AGAINST TRANSPLANT REJECTION
     Dosage: 1440 MG, QD (720 MILLIGRAM, BID)
     Dates: start: 20190609, end: 20190621
  12. MYCOPHENOLATE MOFETIL. [Suspect]
     Active Substance: MYCOPHENOLATE MOFETIL
     Indication: PROPHYLAXIS AGAINST TRANSPLANT REJECTION
     Dosage: 1440 MG, QD (720 MILLIGRAM, BID)
     Route: 048
     Dates: start: 20190609, end: 20190621
  13. DOBUTAMINE [Suspect]
     Active Substance: DOBUTAMINE HYDROCHLORIDE
     Indication: CIRCULATORY COLLAPSE
     Dosage: 7 UG/KG, QMN
     Route: 042
     Dates: start: 20190527, end: 20190530
  14. VALACICLOVIR [Suspect]
     Active Substance: VALACYCLOVIR HYDROCHLORIDE
     Indication: INFECTION PROPHYLAXIS
     Dosage: 1000 MG, QD (500 MILLIGRAM, BID)
     Route: 048
     Dates: start: 20190603
  15. ELIQUIS [Suspect]
     Active Substance: APIXABAN
     Indication: ATRIAL FIBRILLATION
     Dosage: 10 MG, QD
     Route: 048
     Dates: start: 201812, end: 20190526
  16. LASILIX [Suspect]
     Active Substance: FUROSEMIDE
     Indication: HYPERTROPHIC CARDIOMYOPATHY
     Dosage: 40 MG, QD
     Route: 048
     Dates: start: 2008, end: 20190526
  17. ESOMEPRAZOLE MAGNESIUM. [Suspect]
     Active Substance: ESOMEPRAZOLE MAGNESIUM
     Indication: GASTROOESOPHAGEAL REFLUX DISEASE
     Dosage: 20 MG, QD
     Route: 048
     Dates: start: 20190527
  18. HYDROCORTISONE. [Suspect]
     Active Substance: HYDROCORTISONE
     Indication: ADRENAL INSUFFICIENCY
     Dosage: 150 MG, QD
     Route: 042
     Dates: start: 20190607
  19. STILNOX [Suspect]
     Active Substance: ZOLPIDEM TARTRATE
     Indication: SLEEP DISORDER
     Dosage: 10 MG
     Route: 048
     Dates: start: 20190520, end: 20190526
  20. SULFAMETHOXAZOLE/TRIMETHOPRIM [Suspect]
     Active Substance: SULFAMETHOXAZOLE\TRIMETHOPRIM
     Indication: INFECTION PROPHYLAXIS
     Dosage: 1 DF, QD
     Route: 048
     Dates: start: 20190529
  21. CORDARONE [Suspect]
     Active Substance: AMIODARONE HYDROCHLORIDE
     Indication: ATRIAL FIBRILLATION
     Dosage: 300 MG, QD
     Route: 042
     Dates: start: 20190529, end: 20190601
  22. ELIQUIS [Suspect]
     Active Substance: APIXABAN
     Indication: CEREBROVASCULAR ACCIDENT PROPHYLAXIS
  23. ATORVASTATIN CALCIUM. [Suspect]
     Active Substance: ATORVASTATIN CALCIUM
     Indication: HYPERCHOLESTEROLAEMIA
     Dosage: 10 MG, QD
     Route: 048
     Dates: start: 201812, end: 20190526
  24. SPIRONOLACTONE. [Suspect]
     Active Substance: SPIRONOLACTONE
     Indication: HYPERTROPHIC CARDIOMYOPATHY
     Dosage: 25 MG, QD
     Route: 048
     Dates: start: 201902, end: 20190526
  25. NORADRENALINE MYLAN [Suspect]
     Active Substance: NOREPINEPHRINE\NOREPINEPHRINE BITARTRATE
     Indication: CIRCULATORY COLLAPSE
     Dosage: 1 UG/KG, QMN
     Route: 042
     Dates: start: 20190527, end: 20190612
  26. LEVOTHYROXINE SODIUM. [Suspect]
     Active Substance: LEVOTHYROXINE SODIUM
     Indication: HYPOTHYROIDISM
     Dosage: 106.25 UG, QD
     Route: 048
     Dates: start: 2008
  27. REMIFENTANIL MYLAN [Suspect]
     Active Substance: REMIFENTANIL
     Indication: SEDATION
     Dosage: 15 UG/KG, QH
     Route: 042
     Dates: start: 20190527, end: 20190530
  28. ENTRESTO [Suspect]
     Active Substance: SACUBITRIL\VALSARTAN
     Indication: HYPERTROPHIC CARDIOMYOPATHY
     Dosage: 2 DF, QD (1-0-1)
     Route: 048
     Dates: start: 20181220, end: 20190526

REACTIONS (1)
  - Interstitial lung disease [Recovering/Resolving]

NARRATIVE: CASE EVENT DATE: 20190618
